FAERS Safety Report 15299421 (Version 21)
Quarter: 2022Q1

REPORT INFORMATION
  Report Type: Report from Study
  Country: FR (occurrence: FR)
  Receive Date: 20180821
  Receipt Date: 20220310
  Transmission Date: 20220423
  Serious: Yes (Death, Other)
  Sender: FDA-Public Use
  Company Number: FR-ABBVIE-18K-056-2443457-00

PATIENT
  Age: 78 Year
  Sex: Male
  Weight: 52 kg

DRUGS (39)
  1. VENETOCLAX [Suspect]
     Active Substance: VENETOCLAX
     Indication: Chronic lymphocytic leukaemia
     Route: 048
     Dates: start: 20180509, end: 20180515
  2. VENETOCLAX [Suspect]
     Active Substance: VENETOCLAX
     Route: 048
     Dates: start: 20180516, end: 20180522
  3. VENETOCLAX [Suspect]
     Active Substance: VENETOCLAX
     Route: 048
     Dates: start: 20180523, end: 20180529
  4. VENETOCLAX [Suspect]
     Active Substance: VENETOCLAX
     Route: 048
     Dates: start: 20180530, end: 20180605
  5. VENETOCLAX [Suspect]
     Active Substance: VENETOCLAX
     Dosage: DOSE DECREASED
     Route: 048
     Dates: start: 20180606, end: 20190122
  6. VENETOCLAX [Suspect]
     Active Substance: VENETOCLAX
     Route: 048
     Dates: start: 2019, end: 201902
  7. SODIUM BICARBONATE [Concomitant]
     Active Substance: SODIUM BICARBONATE
     Indication: Oral pain
     Dates: start: 20180507
  8. MAXIDEX [Concomitant]
     Active Substance: DEXAMETHASONE
     Indication: Eye infection toxoplasmal
     Dates: start: 20180507, end: 20180514
  9. MAXIDEX [Concomitant]
     Active Substance: DEXAMETHASONE
     Indication: Visual impairment
     Dates: start: 20180507
  10. TROPICAMIDE [Concomitant]
     Active Substance: TROPICAMIDE
     Indication: Visual impairment
     Dates: start: 20180507, end: 20180605
  11. TOBRADEX [Concomitant]
     Active Substance: DEXAMETHASONE\TOBRAMYCIN
     Indication: Visual impairment
     Dates: start: 20180517, end: 20180605
  12. REFRESH CELLUVISC [Concomitant]
     Active Substance: CARBOXYMETHYLCELLULOSE SODIUM
     Indication: Visual impairment
     Dates: start: 20180606
  13. ALGINATE DE SODIUM/BICARBONATE DE SODIUM [Concomitant]
     Indication: Dyspepsia
     Dosage: IF REQUIRED
     Dates: start: 20180509, end: 20180610
  14. ALGINATE DE SODIUM/BICARBONATE DE SODIUM [Concomitant]
     Indication: Gastrointestinal disorder prophylaxis
  15. ALLOPURINOL [Concomitant]
     Active Substance: ALLOPURINOL
     Indication: Prophylaxis
     Dates: start: 20180507, end: 20180610
  16. AZITHROMYCIN [Concomitant]
     Active Substance: AZITHROMYCIN
     Indication: Eye disorder
     Dates: start: 20180508, end: 20180610
  17. ACETAMINOPHEN [Concomitant]
     Active Substance: ACETAMINOPHEN
     Indication: Pain
     Dosage: IF REQUIRED
     Dates: start: 20180507
  18. ACUPAN [Concomitant]
     Active Substance: NEFOPAM HYDROCHLORIDE
     Indication: Pain
     Dosage: IF REQUIRED
     Dates: start: 20180507, end: 20180608
  19. ALFUZOSIN [Concomitant]
     Active Substance: ALFUZOSIN
     Indication: Benign prostatic hyperplasia
     Dates: start: 20180507, end: 20180613
  20. TAMSULOSIN [Concomitant]
     Active Substance: TAMSULOSIN
     Indication: Benign prostatic hyperplasia
     Dates: start: 20180507, end: 20180611
  21. SODIUM CHLOROAURATE [Concomitant]
     Indication: Hypervolaemia
     Dosage: SODIUM CHLORATE 0.9%
     Dates: start: 20180507, end: 20180511
  22. SODIUM CHLOROAURATE [Concomitant]
     Dates: start: 20180515, end: 20180518
  23. SODIUM CHLOROAURATE [Concomitant]
     Dates: start: 20180523, end: 20180524
  24. SODIUM CHLOROAURATE [Concomitant]
     Dates: start: 20180606, end: 20180608
  25. SODIUM CHLOROAURATE [Concomitant]
     Dates: start: 20180530, end: 20180531
  26. DEXTROSE [Concomitant]
     Active Substance: DEXTROSE
     Indication: Hypervolaemia
     Dosage: GLUCOSE 5%
     Dates: start: 20180530, end: 20180531
  27. TRANXENE [Concomitant]
     Active Substance: CLORAZEPATE DIPOTASSIUM
     Indication: Anxiety
     Dates: start: 20180515, end: 20180518
  28. TRANXENE [Concomitant]
     Active Substance: CLORAZEPATE DIPOTASSIUM
     Indication: Prophylaxis
     Dates: start: 20180523, end: 20180524
  29. TRANXENE [Concomitant]
     Active Substance: CLORAZEPATE DIPOTASSIUM
     Dates: start: 20180530, end: 20180531
  30. TRANXENE [Concomitant]
     Active Substance: CLORAZEPATE DIPOTASSIUM
     Dates: start: 20180606, end: 20180608
  31. TRANXENE [Concomitant]
     Active Substance: CLORAZEPATE DIPOTASSIUM
     Dates: start: 20180606, end: 20180608
  32. TRANXENE [Concomitant]
     Active Substance: CLORAZEPATE DIPOTASSIUM
     Dosage: 1ST DOSE
     Dates: start: 20180507, end: 20180511
  33. LORMETAZEPAM [Concomitant]
     Active Substance: LORMETAZEPAM
     Indication: Prophylaxis
     Dates: start: 20181116
  34. TAMSULOSIN HYDROCHLORIDE [Concomitant]
     Active Substance: TAMSULOSIN HYDROCHLORIDE
     Indication: Benign prostatic hyperplasia
     Dates: start: 20181116, end: 20190216
  35. ALPRAZOLAM [Concomitant]
     Active Substance: ALPRAZOLAM
     Indication: Anxiolytic therapy
     Dates: start: 20181116
  36. MAXIDEX [Concomitant]
     Active Substance: DEXAMETHASONE
     Indication: Visual impairment
     Dates: start: 20180507
  37. HC [Concomitant]
     Indication: Malnutrition
     Dates: start: 20180507, end: 20180515
  38. AMICA [Concomitant]
     Indication: Prophylaxis
     Dates: start: 20181116, end: 20190216
  39. XANAX [Concomitant]
     Active Substance: ALPRAZOLAM
     Indication: Anxiolytic therapy
     Dates: start: 20181116

REACTIONS (24)
  - Hepatic failure [Fatal]
  - Ascites [Fatal]
  - General physical condition abnormal [Fatal]
  - Chronic lymphocytic leukaemia [Not Recovered/Not Resolved]
  - Ascites [Recovered/Resolved]
  - Painful respiration [Recovered/Resolved]
  - Abdominal discomfort [Recovered/Resolved]
  - General physical condition abnormal [Recovered/Resolved]
  - Ascites [Not Recovered/Not Resolved]
  - Hepatic failure [Not Recovered/Not Resolved]
  - Asthenia [Not Recovered/Not Resolved]
  - Dysphagia [Not Recovered/Not Resolved]
  - Incorrect dose administered [Not Recovered/Not Resolved]
  - Influenza [Recovered/Resolved]
  - Pain [Not Recovered/Not Resolved]
  - Anxiety [Unknown]
  - Dyspnoea [Not Recovered/Not Resolved]
  - Muscle spasms [Recovered/Resolved]
  - Sleep disorder [Not Recovered/Not Resolved]
  - Oral fungal infection [Recovered/Resolved]
  - Thrombocytopenia [Not Recovered/Not Resolved]
  - Hyperkalaemia [Recovered/Resolved]
  - Anaemia [Recovered/Resolved]
  - Neutropenia [Recovered/Resolved]

NARRATIVE: CASE EVENT DATE: 20180509
